FAERS Safety Report 7855276-5 (Version None)
Quarter: 2011Q4

REPORT INFORMATION
  Report Type: 
  Country: None (occurrence: None)
  Receive Date: 20111026
  Receipt Date: 20111020
  Transmission Date: 20120403
  Serious: Yes (Congenital Anomaly)
  Sender: FDA-Public Use
  Company Number: US-PFIZER INC-2011254477

PATIENT

DRUGS (1)
  1. RELPAX [Suspect]
     Dosage: UNK
     Route: 064

REACTIONS (3)
  - DEXTROCARDIA [None]
  - ABORTION SPONTANEOUS [None]
  - MATERNAL EXPOSURE DURING PREGNANCY [None]
